APPROVED DRUG PRODUCT: NITROPRESS
Active Ingredient: SODIUM NITROPRUSSIDE
Strength: 50MG/VIAL
Dosage Form/Route: INJECTABLE;INJECTION
Application: A071555 | Product #001
Applicant: ABBOTT LABORATORIES PHARMACEUTICAL PRODUCTS DIV
Approved: Nov 16, 1987 | RLD: No | RS: No | Type: DISCN